FAERS Safety Report 6551130-X (Version None)
Quarter: 2010Q1

REPORT INFORMATION
  Report Type: 
  Country: None (occurrence: None)
  Receive Date: 20100121
  Receipt Date: 20100114
  Transmission Date: 20100710
  Serious: Yes (Disabling)
  Sender: FDA-Public Use
  Company Number: SPV1-2009-02334

PATIENT
  Age: 65 Year
  Sex: Female
  Weight: 80 kg

DRUGS (2)
  1. MESALAMINE [Suspect]
     Indication: PROCTITIS ULCERATIVE
     Dosage: 1.2 G, 2X/DAY:BID, ORAL
     Route: 048
     Dates: start: 20091101, end: 20091201
  2. PENTASA [Concomitant]

REACTIONS (1)
  - PHOTOSENSITIVITY REACTION [None]
